FAERS Safety Report 10027350 (Version 1)
Quarter: 2014Q1

REPORT INFORMATION
  Report Type: Spontaneous
  Country: DE (occurrence: None)
  Receive Date: 20140318
  Receipt Date: 20140318
  Transmission Date: 20141002
  Serious: Yes (Hospitalization, Congenital Anomaly, Other)
  Sender: FDA-Public Use
  Company Number: AUR-APL-2014-02705

PATIENT
  Sex: Male
  Weight: 3.83 kg

DRUGS (2)
  1. LAMOTRIGINE (LAMOTRIGINE) [Suspect]
     Indication: EPILEPSY
     Dosage: (100 MG,1 D)
     Route: 064
     Dates: start: 20111010, end: 20120721
  2. FOLSAURE [Concomitant]

REACTIONS (15)
  - Hydrocele [None]
  - Foetal exposure during pregnancy [None]
  - Crying [None]
  - Hypotonia [None]
  - Liver disorder [None]
  - Feeding disorder [None]
  - Exposure during breast feeding [None]
  - Hepatomegaly [None]
  - Congenital anomaly [None]
  - Aspartate aminotransferase increased [None]
  - Alanine aminotransferase increased [None]
  - Gamma-glutamyltransferase increased [None]
  - Blood alkaline phosphatase increased [None]
  - Blood lactate dehydrogenase increased [None]
  - Cholelithiasis [None]
